FAERS Safety Report 4333103-0 (Version None)
Quarter: 2004Q2

REPORT INFORMATION
  Report Type: 
  Country: None (occurrence: None)
  Receive Date: 20040402
  Receipt Date: 20040319
  Transmission Date: 20050107
  Serious: Yes (Disabling)
  Sender: FDA-Public Use
  Company Number: 2004-BP-02272BR

PATIENT
  Age: 74 Year
  Sex: Female

DRUGS (5)
  1. SPIRIVA [Suspect]
     Indication: CHRONIC OBSTRUCTIVE AIRWAYS DISEASE
     Dosage: 18 MCG (18 MCG, 1 KAI OAD) IH
     Route: 055
     Dates: start: 20030701
  2. FORASEQ (FORASEQ) (KAI) [Concomitant]
  3. TEOLONG (THEOPHYLLINE) (KAI) [Concomitant]
  4. BEROTEC (FENOTEROL HYDROBROMIDE) (LOH) [Concomitant]
  5. ATROVENT [Concomitant]

REACTIONS (2)
  - HERPES ZOSTER [None]
  - NEUROPATHY [None]
